FAERS Safety Report 4817277-0 (Version None)
Quarter: 2005Q4

REPORT INFORMATION
  Report Type: 
  Country: None (occurrence: None)
  Receive Date: 20051018
  Receipt Date: 20050329
  Transmission Date: 20060501
  Serious: Yes (Other)
  Sender: FDA-Public Use
  Company Number: PHEH2005US03712

PATIENT
  Age: 57 Year
  Sex: Female

DRUGS (3)
  1. ZOMETA [Suspect]
     Indication: METASTASES TO BONE
     Dosage: 4 MG. ONCE/SINGLE
     Dates: start: 20050321, end: 20050321
  2. TAXOTERE [Concomitant]
  3. XELODA [Concomitant]

REACTIONS (2)
  - NIGHT SWEATS [None]
  - PYREXIA [None]
